FAERS Safety Report 22207940 (Version 2)
Quarter: 2023Q2

REPORT INFORMATION
  Report Type: Report from Study
  Country: US (occurrence: US)
  Receive Date: 20230413
  Receipt Date: 20230510
  Transmission Date: 20230722
  Serious: Yes (Hospitalization, Other)
  Sender: FDA-Public Use
  Company Number: US-CLOVIS ONCOLOGY-CLO-2022-001401

PATIENT
  Age: 47 Year
  Sex: Female

DRUGS (6)
  1. RUBRACA [Suspect]
     Active Substance: RUCAPARIB CAMSYLATE
     Indication: Ovarian cancer
     Dosage: 500 MILLIGRAM, BID
     Route: 048
     Dates: start: 20220909, end: 20221208
  2. RUBRACA [Suspect]
     Active Substance: RUCAPARIB CAMSYLATE
     Indication: Cancer gene carrier
     Dosage: 600 MILLIGRAM, BID
     Route: 048
     Dates: start: 20220909
  3. RUBRACA [Suspect]
     Active Substance: RUCAPARIB CAMSYLATE
     Dosage: 500 MILLIGRAM, BID
     Route: 048
     Dates: start: 202211
  4. RUBRACA [Suspect]
     Active Substance: RUCAPARIB CAMSYLATE
     Dosage: 500 MILLIGRAM, BID
     Route: 048
     Dates: start: 202303
  5. RUBRACA [Suspect]
     Active Substance: RUCAPARIB CAMSYLATE
     Dosage: 500 MILLIGRAM, BID
     Route: 048
     Dates: start: 20220910
  6. ATIVAN [Concomitant]
     Active Substance: LORAZEPAM
     Indication: Anxiety

REACTIONS (18)
  - Sepsis [Unknown]
  - Fungal infection [Unknown]
  - Neuropathy peripheral [Not Recovered/Not Resolved]
  - Mastectomy [Unknown]
  - Mobility decreased [Unknown]
  - Alopecia [Recovering/Resolving]
  - Pain [Not Recovered/Not Resolved]
  - Lymphoedema [Recovering/Resolving]
  - Hot flush [Not Recovered/Not Resolved]
  - Night sweats [Recovering/Resolving]
  - Memory impairment [Recovering/Resolving]
  - Adverse event [Unknown]
  - Constipation [Unknown]
  - Fatigue [Recovering/Resolving]
  - Nausea [Recovering/Resolving]
  - Diarrhoea [Recovering/Resolving]
  - Abdominal pain [Recovering/Resolving]
  - Hepatic enzyme increased [Unknown]

NARRATIVE: CASE EVENT DATE: 20200909
